FAERS Safety Report 6878353-4 (Version None)
Quarter: 2010Q3

REPORT INFORMATION
  Report Type: 
  Country: None (occurrence: None)
  Receive Date: 20100728
  Receipt Date: 20100720
  Transmission Date: 20110219
  Serious: Yes (Hospitalization, Other)
  Sender: FDA-Public Use
  Company Number: US-PFIZER INC-2010019225

PATIENT
  Sex: Female
  Weight: 63.5 kg

DRUGS (1)
  1. SUTENT [Suspect]
     Indication: NEOPLASM MALIGNANT
     Dosage: 50 MG, 1X/DAY, FOR 28 DAYS EVEY 42 DAYS
     Route: 048
     Dates: start: 20100125

REACTIONS (7)
  - BLOOD PRESSURE INCREASED [None]
  - DYSPNOEA [None]
  - HYPERHIDROSIS [None]
  - HYPOKALAEMIC SYNDROME [None]
  - MUSCULAR WEAKNESS [None]
  - PALMAR-PLANTAR ERYTHRODYSAESTHESIA SYNDROME [None]
  - TONGUE DISORDER [None]
